FAERS Safety Report 19111897 (Version 1)
Quarter: 2021Q2

REPORT INFORMATION
  Report Type: Spontaneous
  Country: US (occurrence: US)
  Receive Date: 20210408
  Receipt Date: 20210408
  Transmission Date: 20210717
  Serious: No
  Sender: FDA-Public Use
  Company Number: US-SYMOGEN - AB-202000018

PATIENT
  Age: 63 Year
  Sex: Female

DRUGS (1)
  1. LEUKINE [Suspect]
     Active Substance: SARGRAMOSTIM
     Indication: PRODUCT USED FOR UNKNOWN INDICATION
     Route: 065

REACTIONS (1)
  - Injection site pain [Unknown]
